FAERS Safety Report 10455388 (Version 2)
Quarter: 2014Q3

REPORT INFORMATION
  Report Type: Spontaneous
  Country: US (occurrence: US)
  Receive Date: 20140916
  Receipt Date: 20140924
  Transmission Date: 20150326
  Serious: No
  Sender: FDA-Public Use
  Company Number: US-009507513-1409USA007161

PATIENT
  Sex: Male
  Weight: 110.66 kg

DRUGS (1)
  1. JANUVIA [Suspect]
     Active Substance: SITAGLIPTIN PHOSPHATE
     Indication: TYPE 2 DIABETES MELLITUS
     Dosage: DOSE/FREQUENCY: 100MG
     Route: 048
     Dates: start: 201401, end: 201408

REACTIONS (4)
  - Poor quality sleep [Unknown]
  - Sinusitis [Unknown]
  - Dry mouth [Recovered/Resolved]
  - Rhinitis [Recovering/Resolving]

NARRATIVE: CASE EVENT DATE: 2014
